FAERS Safety Report 4356368-8 (Version None)
Quarter: 2004Q2

REPORT INFORMATION
  Report Type: 
  Country: None (occurrence: None)
  Receive Date: 20040506
  Receipt Date: 20040427
  Transmission Date: 20050107
  Serious: Yes (Life-Threatening, Hospitalization)
  Sender: FDA-Public Use
  Company Number: K200400654

PATIENT
  Age: 47 Year
  Sex: Female
  Weight: 63.9 kg

DRUGS (14)
  1. ALTACE [Suspect]
     Dosage: 10 MG, QD, ORAL
     Route: 048
  2. VIOXX [Suspect]
     Dosage: 25 MG, QD, ORAL
     Route: 048
  3. ASPIRIN [Suspect]
  4. PEGINTRON ^SCHERING-PLOUGH (PEGINTERFERON ALFA-2B) INJECTION, 96MCG [Suspect]
     Indication: HEPATITIS C
     Dosage: 96 MCG, QWK, SUBCUTANEOUS
     Route: 058
     Dates: start: 20040212, end: 20040322
  5. REBETOL (RIBAVIRIN) CAPSULE, 800 MCG [Suspect]
     Indication: HEPATITIS C
     Dosage: 800 MG, QD, ORAL
     Route: 048
     Dates: start: 20040212, end: 20040322
  6. LITHIUM (LITHIUM) 300 MG [Suspect]
     Indication: DEPRESSION
     Dosage: 300 MG, BID
     Dates: start: 20040309
  7. GEODON [Concomitant]
  8. ZYPREXA [Concomitant]
  9. LEXAPRO [Concomitant]
  10. PROTONIX [Concomitant]
  11. NEURONTIN [Concomitant]
  12. CLONAZEPAM [Concomitant]
  13. HYDROCODONE [Concomitant]
  14. PHENERGAN [Concomitant]

REACTIONS (8)
  - AGITATION [None]
  - ANAEMIA [None]
  - ATAXIA [None]
  - DEPRESSION [None]
  - DRUG LEVEL INCREASED [None]
  - DRUG TOXICITY [None]
  - JAUNDICE [None]
  - MENTAL STATUS CHANGES [None]
